FAERS Safety Report 23537852 (Version 1)
Quarter: 2024Q1

REPORT INFORMATION
  Report Type: Spontaneous
  Country: JP (occurrence: JP)
  Receive Date: 20240219
  Receipt Date: 20240219
  Transmission Date: 20240410
  Serious: Yes (Other)
  Sender: FDA-Public Use
  Company Number: JP-TAKEDA-2024TUS015246

PATIENT
  Age: 22 Year
  Sex: Male

DRUGS (1)
  1. LIALDA [Suspect]
     Active Substance: MESALAMINE
     Indication: Product used for unknown indication
     Dosage: 4800 MILLIGRAM, QD
     Route: 048
     Dates: start: 202402

REACTIONS (2)
  - Haematochezia [Unknown]
  - Frequent bowel movements [Unknown]

NARRATIVE: CASE EVENT DATE: 20240201
